FAERS Safety Report 5273522-1 (Version None)
Quarter: 2007Q1

REPORT INFORMATION
  Report Type: 
  Country: None (occurrence: None)
  Receive Date: 20070321
  Receipt Date: 20070321
  Transmission Date: 20070707
  Serious: Yes (Other)
  Sender: FDA-Public Use
  Company Number: None

PATIENT
  Sex: Male
  Weight: 90.7194 kg

DRUGS (8)
  1. ETANERCEPT 25MG IMMUNEX/AMGEN [Suspect]
     Indication: INCLUSION BODY MYOSITIS
     Dosage: 2 DOSES OF 25MG=50MG WEEKLY SQ
     Route: 058
     Dates: start: 20070314, end: 20070314
  2. ETANERCEPT 25MG IMMUNEX/AMGEN [Suspect]
  3. DECONEX [Concomitant]
  4. DIOVAN [Concomitant]
  5. ACETAMINOPHEN AND HYDROCODONE BITARTRATE [Concomitant]
  6. AVINZA [Concomitant]
  7. GENERIC STOOL SOFTENER [Concomitant]
  8. NASONEX [Concomitant]

REACTIONS (11)
  - BACK PAIN [None]
  - FATIGUE [None]
  - HEADACHE [None]
  - LACRIMATION INCREASED [None]
  - NAUSEA [None]
  - PAIN [None]
  - PAIN IN EXTREMITY [None]
  - PHARYNGOLARYNGEAL PAIN [None]
  - PYREXIA [None]
  - RASH [None]
  - RESPIRATORY DISORDER [None]
